FAERS Safety Report 7723377-8 (Version None)
Quarter: 2011Q3

REPORT INFORMATION
  Report Type: 
  Country: None (occurrence: None)
  Receive Date: 20110901
  Receipt Date: 20110825
  Transmission Date: 20111222
  Serious: Yes (Hospitalization)
  Sender: FDA-Public Use
  Company Number: GB-JNJFOC-20110601631

PATIENT
  Age: 62 Year
  Sex: Female

DRUGS (8)
  1. METHOTREXATE [Concomitant]
     Dates: start: 19921101
  2. STEROIDS NOS [Concomitant]
  3. NIZATIDINE [Concomitant]
  4. FOLIC ACID [Concomitant]
  5. INFLIXIMAB, RECOMBINANT [Suspect]
     Indication: RHEUMATOID ARTHRITIS
     Route: 042
     Dates: start: 20050110
  6. ATIVAN [Concomitant]
  7. TRAMADOL HCL [Concomitant]
  8. DICLOFENAC SODIUM [Concomitant]

REACTIONS (2)
  - MYOCARDIAL INFARCTION [None]
  - CELLULITIS [None]
